FAERS Safety Report 7397268-9 (Version None)
Quarter: 2011Q2

REPORT INFORMATION
  Report Type: 
  Country: None (occurrence: None)
  Receive Date: 20110406
  Receipt Date: 20110323
  Transmission Date: 20111010
  Serious: No
  Sender: FDA-Public Use
  Company Number: CA-JNJFOC-20110103648

PATIENT
  Age: 36 Year
  Sex: Female

DRUGS (3)
  1. TRAMADOL HYDROCHLORIDE/ACETAMINOPHEN [Suspect]
     Indication: PAIN
     Route: 048
  2. HYDROMORPHONE HCL [Suspect]
     Indication: PAIN
     Route: 065
  3. DURAGESIC [Suspect]
     Indication: PAIN
     Route: 062

REACTIONS (3)
  - ADVERSE DRUG REACTION [None]
  - DRUG DOSE OMISSION [None]
  - DRUG INEFFECTIVE [None]
